FAERS Safety Report 9728912 (Version 3)
Quarter: 2013Q4

REPORT INFORMATION
  Report Type: Spontaneous
  Country: TN (occurrence: TN)
  Receive Date: 20131204
  Receipt Date: 20131210
  Transmission Date: 20140711
  Serious: Yes (Other)
  Sender: FDA-Public Use
  Company Number: TN-US-EMD SERONO, INC.-7162078

PATIENT
  Age: 46 Year
  Sex: Female

DRUGS (4)
  1. REBIF [Suspect]
     Indication: MULTIPLE SCLEROSIS
     Route: 058
     Dates: start: 2009, end: 201210
  2. REBIF [Suspect]
     Dates: start: 201210
  3. VITAMIN C                          /00008001/ [Concomitant]
     Indication: PRODUCT USED FOR UNKNOWN INDICATION
  4. VITAMIN D                          /00107901/ [Concomitant]
     Indication: PRODUCT USED FOR UNKNOWN INDICATION

REACTIONS (10)
  - Toxic skin eruption [Unknown]
  - Photosensitivity reaction [Not Recovered/Not Resolved]
  - Skin hypopigmentation [Unknown]
  - Skin depigmentation [Recovering/Resolving]
  - Pruritus [Unknown]
  - Injection site rash [Not Recovered/Not Resolved]
  - Injection site pain [Recovering/Resolving]
  - Injection site papule [Recovering/Resolving]
  - Injection site erythema [Recovering/Resolving]
  - Erythema [Recovering/Resolving]
